FAERS Safety Report 13481137 (Version 1)
Quarter: 2017Q2

REPORT INFORMATION
  Report Type: Report from Study
  Country: US (occurrence: US)
  Receive Date: 20170425
  Receipt Date: 20170425
  Transmission Date: 20170830
  Serious: Yes (Death)
  Sender: FDA-Public Use
  Company Number: US-EXELIXIS-CABO-17008959

PATIENT
  Age: 73 Year
  Sex: Male

DRUGS (9)
  1. LOPRESSOR [Concomitant]
     Active Substance: METOPROLOL TARTRATE
  2. MORPHINE [Concomitant]
     Active Substance: MORPHINE
  3. COLACE [Concomitant]
     Active Substance: DOCUSATE SODIUM
  4. PRAVACHOL [Concomitant]
     Active Substance: PRAVASTATIN SODIUM
  5. ZESTRIL [Concomitant]
     Active Substance: LISINOPRIL
  6. CITRUCEL [Concomitant]
     Active Substance: METHYLCELLULOSE (4000 MPA.S)
  7. CABOMETYX [Suspect]
     Active Substance: CABOZANTINIB S-MALATE
     Indication: RENAL CANCER
     Dosage: 60 MG, QD
     Route: 048
     Dates: start: 20170224
  8. PROBIOTIC [Concomitant]
     Active Substance: PROBIOTICS NOS
  9. IRON [Concomitant]
     Active Substance: IRON

REACTIONS (1)
  - Death [Fatal]

NARRATIVE: CASE EVENT DATE: 20170329
